FAERS Safety Report 8561035 (Version 3)
Quarter: 2013Q1

REPORT INFORMATION
  Report Type: Report from Study
  Country: NL (occurrence: NL)
  Receive Date: 20120514
  Receipt Date: 20130304
  Transmission Date: 20140127
  Serious: Yes (Hospitalization)
  Sender: FDA-Public Use
  Company Number: NL-GLAXOSMITHKLINE-B0791544C

PATIENT
  Age: 63 Year
  Sex: Female

DRUGS (6)
  1. PAZOPANIB [Suspect]
     Indication: MALIGNANT NEOPLASM PROGRESSION
     Route: 048
     Dates: start: 20120228
  2. DOCETAXEL [Suspect]
     Indication: MALIGNANT NEOPLASM PROGRESSION
     Route: 042
     Dates: start: 20120306
  3. LOPERAMIDE [Concomitant]
     Dosage: 2MG PER DAY
     Route: 048
     Dates: start: 20120417
  4. DEXAMETHASON [Concomitant]
     Route: 048
     Dates: start: 20120314
  5. MOVICOLON [Concomitant]
     Dosage: 1SAC PER DAY
     Route: 048
     Dates: start: 20120307
  6. METOCLOPRAMIDE [Concomitant]
     Route: 048

REACTIONS (3)
  - Alanine aminotransferase increased [Recovered/Resolved]
  - Pyrexia [Recovered/Resolved]
  - Aspartate aminotransferase increased [Recovered/Resolved]
